FAERS Safety Report 6902349-7 (Version None)
Quarter: 2010Q3

REPORT INFORMATION
  Report Type: 
  Country: None (occurrence: None)
  Receive Date: 20100803
  Receipt Date: 20080513
  Transmission Date: 20110219
  Serious: No
  Sender: FDA-Public Use
  Company Number: US-PFIZER INC-2008042325

PATIENT
  Sex: Female
  Weight: 59.1 kg

DRUGS (3)
  1. LYRICA [Suspect]
     Indication: BACK PAIN
     Route: 048
     Dates: start: 20080501, end: 20080512
  2. SYNTHROID [Concomitant]
  3. ATIVAN [Concomitant]

REACTIONS (2)
  - CONTUSION [None]
  - URINE OUTPUT INCREASED [None]
